FAERS Safety Report 10433830 (Version 2)
Quarter: 2014Q3

REPORT INFORMATION
  Report Type: Spontaneous
  Country: US (occurrence: US)
  Receive Date: 20140905
  Receipt Date: 20140905
  Transmission Date: 20150326
  Serious: Yes (Hospitalization)
  Sender: FDA-Public Use
  Company Number: US-GLAXOSMITHKLINE-A0730289A

PATIENT
  Sex: Female
  Weight: 113.6 kg

DRUGS (23)
  1. GLUCOPHAGE [Concomitant]
     Active Substance: METFORMIN HYDROCHLORIDE
  2. BEXTRA [Concomitant]
     Active Substance: VALDECOXIB
  3. ULTRAM [Concomitant]
     Active Substance: TRAMADOL HYDROCHLORIDE
  4. ACETAMINOPHEN. [Concomitant]
     Active Substance: ACETAMINOPHEN
  5. NORVASC [Concomitant]
     Active Substance: AMLODIPINE BESYLATE
  6. OXYCODONE WITH APAP [Concomitant]
  7. AVANDAMET [Suspect]
     Active Substance: METFORMIN HYDROCHLORIDE\ROSIGLITAZONE MALEATE
     Indication: TYPE 2 DIABETES MELLITUS
     Route: 065
     Dates: start: 1999, end: 200807
  8. METFORMIN [Concomitant]
     Active Substance: METFORMIN HYDROCHLORIDE
  9. COUMADIN [Concomitant]
     Active Substance: WARFARIN SODIUM
  10. LEVAQUIN [Concomitant]
     Active Substance: LEVOFLOXACIN
  11. MELOXICAM. [Concomitant]
     Active Substance: MELOXICAM
  12. PREMARIN [Concomitant]
     Active Substance: ESTROGENS, CONJUGATED
  13. TOPROL XL [Concomitant]
     Active Substance: METOPROLOL SUCCINATE
  14. LASIX [Concomitant]
     Active Substance: FUROSEMIDE
  15. WARFARIN [Concomitant]
     Active Substance: WARFARIN
  16. ZETIA [Concomitant]
     Active Substance: EZETIMIBE
  17. AVANDIA [Suspect]
     Active Substance: ROSIGLITAZONE MALEATE
     Indication: TYPE 2 DIABETES MELLITUS
     Dosage: 8MG PER DAY
     Route: 048
     Dates: start: 1999, end: 200807
  18. CRESTOR [Concomitant]
     Active Substance: ROSUVASTATIN CALCIUM
  19. ALBUTEROL. [Concomitant]
     Active Substance: ALBUTEROL
  20. CLONIDINE. [Concomitant]
     Active Substance: CLONIDINE
  21. TRIAMTERENE AND HYDROCHLOROTHIAZIDE [Concomitant]
     Active Substance: HYDROCHLOROTHIAZIDE\TRIAMTERENE
  22. ASPIRIN. [Concomitant]
     Active Substance: ASPIRIN
  23. MOBIC [Concomitant]
     Active Substance: MELOXICAM

REACTIONS (5)
  - Sleep apnoea syndrome [Unknown]
  - Coronary artery disease [Unknown]
  - Cerebrovascular accident [Unknown]
  - Cardiac failure congestive [Not Recovered/Not Resolved]
  - Myocardial infarction [Unknown]
